FAERS Safety Report 14062103 (Version 2)
Quarter: 2019Q3

REPORT INFORMATION
  Report Type: Spontaneous
  Country: US (occurrence: US)
  Receive Date: 20171009
  Receipt Date: 20190702
  Transmission Date: 20191004
  Serious: Yes (Other)
  Sender: FDA-Public Use
  Company Number: US-CELGENEUS-USA-20171000708

PATIENT
  Sex: Female

DRUGS (1)
  1. REVLIMID [Suspect]
     Active Substance: LENALIDOMIDE
     Indication: PLASMA CELL MYELOMA
     Dosage: 15 MILLIGRAM
     Route: 048
     Dates: start: 20170311

REACTIONS (9)
  - Muscle contracture [Unknown]
  - Decreased appetite [Unknown]
  - Oedema peripheral [Unknown]
  - Taste disorder [Unknown]
  - Constipation [Unknown]
  - Muscle spasms [Unknown]
  - Dizziness [Unknown]
  - Tongue disorder [Unknown]
  - Neuropathy peripheral [Unknown]

NARRATIVE: CASE EVENT DATE: 2017
